FAERS Safety Report 7411783-0 (Version None)
Quarter: 2011Q2

REPORT INFORMATION
  Report Type: 
  Country: None (occurrence: None)
  Receive Date: 20110413
  Receipt Date: 20110114
  Transmission Date: 20111010
  Serious: No
  Sender: FDA-Public Use
  Company Number: US-BRISTOL-MYERS SQUIBB COMPANY-15488604

PATIENT
  Age: 61 Year
  Sex: Male

DRUGS (3)
  1. PEPCID [Concomitant]
  2. ERBITUX [Suspect]
  3. DEXAMETHASONE [Concomitant]

REACTIONS (1)
  - PRURITUS [None]
